FAERS Safety Report 15460087 (Version 5)
Quarter: 2020Q1

REPORT INFORMATION
  Report Type: Report from Study
  Country: US (occurrence: US)
  Receive Date: 20181003
  Receipt Date: 20200330
  Transmission Date: 20200409
  Serious: Yes (Other)
  Sender: FDA-Public Use
  Company Number: US-ARIAD PHARMACEUTICALS, INC-2017US007818

PATIENT
  Age: 59 Year
  Sex: Female
  Weight: 89 kg

DRUGS (3)
  1. PONATINIB [Suspect]
     Active Substance: PONATINIB
     Indication: CHRONIC MYELOID LEUKAEMIA
     Dosage: 15 MILLIGRAM, BID
     Route: 048
     Dates: start: 20140124
  2. PONATINIB [Suspect]
     Active Substance: PONATINIB
     Dosage: 15 MILLIGRAM, BID
     Route: 048
     Dates: start: 2018
  3. PONATINIB [Suspect]
     Active Substance: PONATINIB
     Dosage: 30 MILLIGRAM, QD
     Route: 048
     Dates: start: 201910

REACTIONS (9)
  - Upper limb fracture [Unknown]
  - Product dose omission [Unknown]
  - Eating disorder [Unknown]
  - Dyspnoea [Unknown]
  - Heart rate increased [Unknown]
  - Malaise [Unknown]
  - Bronchitis [Unknown]
  - Fatigue [Unknown]
  - Oral infection [Unknown]

NARRATIVE: CASE EVENT DATE: 201701
